FAERS Safety Report 25110497 (Version 1)
Quarter: 2025Q1

REPORT INFORMATION
  Report Type: Spontaneous
  Country: US (occurrence: US)
  Receive Date: 20250324
  Receipt Date: 20250324
  Transmission Date: 20250408
  Serious: No
  Sender: ROCHE
  Company Number: US-ROCHE-10000229202

PATIENT
  Sex: Male

DRUGS (15)
  1. ERIVEDGE [Suspect]
     Active Substance: VISMODEGIB
     Indication: Basal cell carcinoma
     Route: 048
  2. ASPIRIN [Concomitant]
     Active Substance: ASPIRIN
  3. EZETIMIBE [Concomitant]
     Active Substance: EZETIMIBE
  4. FAMOTIDINE [Concomitant]
     Active Substance: FAMOTIDINE
  5. FISH OIL [Concomitant]
     Active Substance: FISH OIL
  6. INVOKANA [Concomitant]
     Active Substance: CANAGLIFLOZIN
  7. LEVOTHYROXINE [Concomitant]
     Active Substance: LEVOTHYROXINE
  8. LOSARTAN POTASSIUM [Concomitant]
     Active Substance: LOSARTAN POTASSIUM
  9. PIOGLITAZONE [Concomitant]
     Active Substance: PIOGLITAZONE
  10. ROSUVASTATIN [Concomitant]
     Active Substance: ROSUVASTATIN
  11. TAMSULOSINE H [Concomitant]
  12. TESTOSTERONE [Concomitant]
     Active Substance: TESTOSTERONE
  13. TRULICITY SOA [Concomitant]
  14. VITAMIN B12 [Concomitant]
     Active Substance: CYANOCOBALAMIN
  15. VITAMIN D [Concomitant]
     Active Substance: VITAMIN D NOS

REACTIONS (5)
  - Malaise [Not Recovered/Not Resolved]
  - Ill-defined disorder [Not Recovered/Not Resolved]
  - Ageusia [Not Recovered/Not Resolved]
  - Decreased appetite [Not Recovered/Not Resolved]
  - Fatigue [Not Recovered/Not Resolved]
